FAERS Safety Report 8161570-3 (Version None)
Quarter: 2012Q1

REPORT INFORMATION
  Report Type: 
  Country: None (occurrence: None)
  Receive Date: 20120224
  Receipt Date: 20120213
  Transmission Date: 20120608
  Serious: Yes (Hospitalization)
  Sender: FDA-Public Use
  Company Number: FR-GENZYME-CLOF-1001796

PATIENT
  Sex: Female
  Weight: 53 kg

DRUGS (7)
  1. FILGRASTIM [Suspect]
     Indication: ACUTE MYELOID LEUKAEMIA
     Dosage: 5 OTHER ( MICROG/KG), UNK
     Route: 042
     Dates: start: 20110711, end: 20110716
  2. NEXIUM [Concomitant]
     Indication: PRODUCT USED FOR UNKNOWN INDICATION
     Dosage: 210 MG, UNK
     Route: 048
     Dates: start: 20110723, end: 20110804
  3. LEUCOVORIN CALCIUM [Concomitant]
     Indication: PRODUCT USED FOR UNKNOWN INDICATION
     Dosage: UNK
     Route: 065
  4. CYTARABINE [Suspect]
     Indication: ACUTE MYELOID LEUKAEMIA
     Dosage: 1000 MG/M2, UNK
     Route: 042
     Dates: start: 20110711, end: 20110715
  5. EVOLTRA [Suspect]
     Indication: ACUTE MYELOID LEUKAEMIA
     Dosage: FIRST REGIMEN
     Route: 065
     Dates: start: 20110523, end: 20110529
  6. NEUPOGEN [Concomitant]
     Indication: PRODUCT USED FOR UNKNOWN INDICATION
     Dosage: UNK UNK, UNK
     Route: 065
  7. EVOLTRA [Suspect]
     Dosage: 30 MG/M2, SECOND REGIMEN
     Route: 042
     Dates: start: 20110711, end: 20110716

REACTIONS (3)
  - RASH [None]
  - PYREXIA [None]
  - ACUTE FEBRILE NEUTROPHILIC DERMATOSIS [None]
